FAERS Safety Report 21194986 (Version 1)
Quarter: 2022Q3

REPORT INFORMATION
  Report Type: Spontaneous
  Country: US (occurrence: None)
  Receive Date: 20220809
  Receipt Date: 20220809
  Transmission Date: 20221027
  Serious: No
  Sender: FDA-Public Use
  Company Number: None

PATIENT
  Age: 74 Year
  Sex: Female

DRUGS (2)
  1. ACTEMRA [Suspect]
     Active Substance: TOCILIZUMAB
     Indication: Kidney infection
  2. ACTEMRA [Suspect]
     Active Substance: TOCILIZUMAB
     Indication: Cystitis

REACTIONS (2)
  - Kidney infection [None]
  - Cystitis [None]
